FAERS Safety Report 15669383 (Version 1)
Quarter: 2018Q4

REPORT INFORMATION
  Report Type: Spontaneous
  Country: US (occurrence: US)
  Receive Date: 20181129
  Receipt Date: 20181129
  Transmission Date: 20190205
  Serious: No
  Sender: FDA-Public Use
  Company Number: US-ASTRAZENECA-2018SF49295

PATIENT
  Sex: Female

DRUGS (1)
  1. SYMBICORT [Suspect]
     Active Substance: BUDESONIDE\FORMOTEROL FUMARATE DIHYDRATE
     Dosage: 80/4.5MCG, UNKNOWN FREQUENCY UNKNOWN
     Route: 055

REACTIONS (4)
  - Mental impairment [Unknown]
  - Device difficult to use [Unknown]
  - Hypoacusis [Unknown]
  - Anger [Unknown]
